FAERS Safety Report 7791063-4 (Version None)
Quarter: 2011Q4

REPORT INFORMATION
  Report Type: 
  Country: None (occurrence: None)
  Receive Date: 20111003
  Receipt Date: 20110922
  Transmission Date: 20120403
  Serious: Yes (Hospitalization)
  Sender: FDA-Public Use
  Company Number: US-BIOGENIDEC-2011BI036549

PATIENT
  Sex: Male

DRUGS (2)
  1. AVONEX [Suspect]
     Indication: MULTIPLE SCLEROSIS
     Route: 030
     Dates: start: 20070630
  2. COREG [Concomitant]
     Indication: BLOOD PRESSURE

REACTIONS (3)
  - PNEUMONIA [None]
  - FATIGUE [None]
  - DRUG INTERACTION [None]
